FAERS Safety Report 12748702 (Version 1)
Quarter: 2016Q3

REPORT INFORMATION
  Report Type: Report from Study
  Country: PL (occurrence: PL)
  Receive Date: 20160915
  Receipt Date: 20160915
  Transmission Date: 20161109
  Serious: Yes (Other)
  Sender: FDA-Public Use
  Company Number: PL-TEVA-692063ISR

PATIENT

DRUGS (2)
  1. PREGABALIN. [Interacting]
     Active Substance: PREGABALIN
     Indication: PAIN
     Route: 065
  2. MORPHINE [Suspect]
     Active Substance: MORPHINE
     Route: 048

REACTIONS (2)
  - Gastrointestinal obstruction [Unknown]
  - Drug interaction [Unknown]
